FAERS Safety Report 6302797-2 (Version None)
Quarter: 2009Q3

REPORT INFORMATION
  Report Type: 
  Country: None (occurrence: None)
  Receive Date: 20090810
  Receipt Date: 20090512
  Transmission Date: 20100115
  Serious: No
  Sender: FDA-Public Use
  Company Number: A0783745A

PATIENT
  Age: 79 Year
  Sex: Male

DRUGS (3)
  1. ALTABAX [Suspect]
     Dosage: 1APP TWICE PER DAY
     Route: 061
     Dates: start: 20090506
  2. IBUPROFEN [Concomitant]
  3. PAIN KILLER [Concomitant]

REACTIONS (2)
  - APPLICATION SITE PAIN [None]
  - HEADACHE [None]
